FAERS Safety Report 7980044-3 (Version None)
Quarter: 2011Q4

REPORT INFORMATION
  Report Type: 
  Country: None (occurrence: None)
  Receive Date: 20111214
  Receipt Date: 20111205
  Transmission Date: 20120403
  Serious: Yes (Other)
  Sender: FDA-Public Use
  Company Number: PHHY2011BR106588

PATIENT
  Sex: Female
  Weight: 93 kg

DRUGS (3)
  1. FLUTICASONE PROPIONATE/SALMETEROL [Concomitant]
     Indication: ASTHMA
     Dosage: 1 U, BID
  2. OMEPRAZOLE [Concomitant]
     Indication: GASTRITIS
     Dosage: 4 DF A DAY
  3. DIOVAN HCT [Suspect]
     Indication: HYPERTENSION
     Dosage: 1 DF A DAY
     Route: 048

REACTIONS (7)
  - FATIGUE [None]
  - SINUSITIS [None]
  - NAUSEA [None]
  - DIZZINESS [None]
  - ASTHENIA [None]
  - NASOPHARYNGITIS [None]
  - ASTHMA [None]
